FAERS Safety Report 9261782 (Version 2)
Quarter: 2013Q2

REPORT INFORMATION
  Report Type: Spontaneous
  Country: FR (occurrence: FR)
  Receive Date: 20130429
  Receipt Date: 20130603
  Transmission Date: 20140414
  Serious: Yes (Hospitalization, Disabling)
  Sender: FDA-Public Use
  Company Number: FR-B.I. PHARMACEUTICALS,INC./RIDGEFIELD-2013-FF-01236FF

PATIENT
  Age: 75 Year
  Sex: Male
  Weight: 75 kg

DRUGS (7)
  1. PRADAXA [Suspect]
     Indication: ATRIAL FIBRILLATION
     Dosage: 220 MG
     Route: 048
  2. PRADAXA [Suspect]
     Indication: PROPHYLAXIS
  3. ATORVASTATIN [Concomitant]
  4. BISOCE [Concomitant]
  5. SERETIDE [Concomitant]
  6. BRONCHODUAL [Concomitant]
  7. SINEMET [Concomitant]

REACTIONS (2)
  - Embolic stroke [Recovered/Resolved with Sequelae]
  - Myocardial infarction [Recovered/Resolved]
